FAERS Safety Report 14509796 (Version 1)
Quarter: 2018Q1

REPORT INFORMATION
  Report Type: Spontaneous
  Country: US (occurrence: US)
  Receive Date: 20180207
  Receipt Date: 20180207
  Transmission Date: 20180509
  Serious: Yes (Life-Threatening, Hospitalization)
  Sender: FDA-Public Use
  Company Number: None

PATIENT
  Age: 57 Year
  Sex: Male
  Weight: 71.3 kg

DRUGS (3)
  1. LORAZEPAM. [Suspect]
     Active Substance: LORAZEPAM
     Indication: SURGERY
     Route: 048
     Dates: start: 20171025, end: 20171025
  2. GADOPENTETATE DIMEGLUMINE. [Suspect]
     Active Substance: GADOPENTETATE DIMEGLUMINE
     Route: 042
     Dates: start: 20171025, end: 20171025
  3. LORAZEPAM. [Suspect]
     Active Substance: LORAZEPAM
     Indication: CARDIOVASCULAR DISORDER
     Route: 048
     Dates: start: 20171025, end: 20171025

REACTIONS (7)
  - Cardio-respiratory arrest [None]
  - Pulseless electrical activity [None]
  - Respiratory failure [None]
  - Bronchitis [None]
  - Musculoskeletal chest pain [None]
  - Dyspnoea [None]
  - Cardiac arrest [None]

NARRATIVE: CASE EVENT DATE: 20171025
